FAERS Safety Report 6221903-1 (Version None)
Quarter: 2009Q2

REPORT INFORMATION
  Report Type: 
  Country: None (occurrence: None)
  Receive Date: 20090608
  Receipt Date: 20090608
  Transmission Date: 20091009
  Serious: No
  Sender: FDA-Public Use
  Company Number: None

PATIENT
  Sex: Female
  Weight: 45.8133 kg

DRUGS (1)
  1. ESTRADIOL TRANSDERM 0.05MG 1 24 HR [Suspect]
     Dates: start: 20081101, end: 20090201

REACTIONS (2)
  - DEVICE ADHESION ISSUE [None]
  - HOT FLUSH [None]
